FAERS Safety Report 10636411 (Version 1)
Quarter: 2014Q4

REPORT INFORMATION
  Report Type: Spontaneous
  Country: US (occurrence: None)
  Receive Date: 20141203
  Receipt Date: 20141203
  Transmission Date: 20150529
  Serious: Yes (Other)
  Sender: FDA-Public Use
  Company Number: None

PATIENT
  Age: 30 Year
  Sex: Female
  Weight: 96.6 kg

DRUGS (3)
  1. PHENTERMINE? 15MG [Suspect]
     Active Substance: PHENTERMINE
     Indication: WEIGHT LOSS DIET
     Dosage: 1 CAPSULE
     Route: 048
     Dates: start: 20141105, end: 20141112
  2. PHENTERMINE? 15MG [Suspect]
     Active Substance: PHENTERMINE
     Indication: WEIGHT CONTROL
     Dosage: 1 CAPSULE
     Route: 048
     Dates: start: 20141105, end: 20141112
  3. NORETHINDRONE AND ETHINYL ESTRADIOL [Concomitant]
     Active Substance: ETHINYL ESTRADIOL\NORETHINDRONE

REACTIONS (5)
  - Jaundice [None]
  - Nausea [None]
  - Headache [None]
  - Rash erythematous [None]
  - Rash pruritic [None]

NARRATIVE: CASE EVENT DATE: 20141113
